FAERS Safety Report 9836852 (Version 1)
Quarter: 2013Q4

REPORT INFORMATION
  Report Type: Spontaneous
  Country: US (occurrence: None)
  Receive Date: 20131121
  Receipt Date: 20131121
  Transmission Date: 20140711
  Serious: No
  Sender: FDA-Public Use
  Company Number: 1000047961

PATIENT
  Age: 72 Year
  Sex: Female

DRUGS (6)
  1. TUDORZA PRESSAIR [Suspect]
     Indication: CHRONIC OBSTRUCTIVE PULMONARY DISEASE
     Dosage: 800 MCG (400 MCG, 2 IN 1 D), ORAL
     Route: 048
     Dates: start: 20130814
  2. PRO-AIR (PROCATEROL HYDROCHLORIDE) (PROCATEROL HYDROCHLORIDE) [Concomitant]
  3. LISINOPRIL (LISINOPRIL) (LISINOPRIL) [Concomitant]
  4. LATANOPROST (LATANOPROST) (LATANOPROST) [Concomitant]
  5. MUCINEX (GUAIFENESIN) GUAIFENESIN) [Concomitant]
  6. FLUTICASONE (FLUTICASONE) (FLUTICASONE) [Concomitant]

REACTIONS (1)
  - Abdominal pain upper [None]
